FAERS Safety Report 6483596-8 (Version None)
Quarter: 2009Q4

REPORT INFORMATION
  Report Type: 
  Country: None (occurrence: None)
  Receive Date: 20091209
  Receipt Date: 20091201
  Transmission Date: 20100525
  Serious: Yes (Hospitalization)
  Sender: FDA-Public Use
  Company Number: GXKR2007GB07735

PATIENT
  Age: 76 Year
  Sex: Female

DRUGS (6)
  1. TRAMADOL (NGX) [Suspect]
     Indication: BACK PAIN
     Route: 048
  2. FUROSEMIDE [Concomitant]
     Route: 065
  3. SIMVASTATIN [Concomitant]
     Route: 065
  4. LEVOTHYROXINE SODIUM [Concomitant]
     Route: 065
  5. STATIN [Concomitant]
  6. DIURETICS [Concomitant]

REACTIONS (4)
  - BILE DUCT STENOSIS [None]
  - BILE DUCT STENT INSERTION [None]
  - CHOLANGITIS [None]
  - PAIN [None]
